FAERS Safety Report 5789653-3 (Version None)
Quarter: 2008Q2

REPORT INFORMATION
  Report Type: 
  Country: None (occurrence: None)
  Receive Date: 20080618
  Receipt Date: 20080206
  Transmission Date: 20081010
  Serious: Yes (Other)
  Sender: FDA-Public Use
  Company Number: 200810840US

PATIENT
  Age: 51 Year
  Sex: Female

DRUGS (9)
  1. LANTUS [Suspect]
     Indication: TYPE 2 DIABETES MELLITUS
     Dosage: 56 U/DAY INJ
     Dates: start: 20070701
  2. OPTICLIK [Suspect]
     Indication: TYPE 2 DIABETES MELLITUS
     Dates: start: 20070701
  3. APIDRA [Suspect]
     Indication: TYPE 2 DIABETES MELLITUS
     Dosage: INJ
     Dates: start: 20070701
  4. OPTICLIK GREY [Suspect]
     Indication: TYPE 2 DIABETES MELLITUS
     Dates: start: 20070701
  5. AMBIEN [Concomitant]
  6. METFORMIN HYDROCHLORIDE [Concomitant]
  7. PIOGLITAZONE [Concomitant]
  8. PARACETAMOL, HYDROCODONE BITARTRATE (LORTAB /00607101/) [Concomitant]
  9. ASPIRIN [Concomitant]

REACTIONS (2)
  - HYPERGLYCAEMIA [None]
  - HYPOGLYCAEMIA [None]
